FAERS Safety Report 6636132-7 (Version None)
Quarter: 2010Q1

REPORT INFORMATION
  Report Type: 
  Country: None (occurrence: None)
  Receive Date: 20100316
  Receipt Date: 20100227
  Transmission Date: 20100710
  Serious: Yes (Other)
  Sender: FDA-Public Use
  Company Number: US-SANOFI-AVENTIS-2010SA012310

PATIENT
  Age: 72 Year
  Sex: Female

DRUGS (6)
  1. PLAVIX [Suspect]
     Route: 065
     Dates: end: 20080201
  2. CRESTOR [Concomitant]
  3. LISINOPRIL [Concomitant]
  4. AMLODIPINE [Concomitant]
  5. LANTUS [Concomitant]
     Dosage: DOSE:30 UNIT(S)
  6. NOVOLOG [Concomitant]
     Dosage: 8UNITS BEFORE MEALS DOSE:8 UNIT(S)

REACTIONS (2)
  - MUSCLE SPASMS [None]
  - MYOCARDIAL INFARCTION [None]
